FAERS Safety Report 13810170 (Version 2)
Quarter: 2017Q3

REPORT INFORMATION
  Report Type: Spontaneous
  Country: US (occurrence: US)
  Receive Date: 20170728
  Receipt Date: 20170816
  Transmission Date: 20171127
  Serious: Yes (Other)
  Sender: FDA-Public Use
  Company Number: US-GLAXOSMITHKLINE-US2017GSK114963

PATIENT
  Age: 60 Year
  Sex: Female

DRUGS (2)
  1. ADVAIR HFA [Suspect]
     Active Substance: FLUTICASONE PROPIONATE\SALMETEROL XINAFOATE
     Indication: ASTHMA
     Dosage: UNK
     Dates: end: 201705
  2. VENTOLIN HFA [Suspect]
     Active Substance: ALBUTEROL SULFATE
     Indication: ASTHMA
     Dosage: UNK
     Dates: end: 201705

REACTIONS (3)
  - Gastrectomy [Unknown]
  - Post procedural complication [Unknown]
  - Dyspnoea [Unknown]

NARRATIVE: CASE EVENT DATE: 2017
